FAERS Safety Report 23990352 (Version 1)
Quarter: 2024Q2

REPORT INFORMATION
  Report Type: Spontaneous
  Country: FI (occurrence: FI)
  Receive Date: 20240619
  Receipt Date: 20240619
  Transmission Date: 20240716
  Serious: Yes (Hospitalization, Other)
  Sender: FDA-Public Use
  Company Number: FI-ROCHE-3495820

PATIENT
  Age: 70 Year
  Sex: Female
  Weight: 96 kg

DRUGS (42)
  1. ETOPOSIDE [Suspect]
     Active Substance: ETOPOSIDE
     Indication: Diffuse large B-cell lymphoma stage II
     Dosage: CYCLE 2?ROUTE OF ADMIN: INTRAVENOUS USE
     Dates: start: 20240102, end: 20240104
  2. ETOPOSIDE [Suspect]
     Active Substance: ETOPOSIDE
     Dosage: CYCLE 3?ROUTE OF ADMIN: INTRAVENOUS USE
     Dates: start: 20240123, end: 20240125
  3. ETOPOSIDE [Suspect]
     Active Substance: ETOPOSIDE
     Dosage: CYCLE 1?ROUTE OF ADMIN: INTRAVENOUS USE
     Dates: start: 20231212, end: 20231214
  4. CARBOPLATIN [Suspect]
     Active Substance: CARBOPLATIN
     Indication: Diffuse large B-cell lymphoma stage II
     Dosage: 5 AUC, CYCLE 1 - CYCLE 2?ROA: INTRAVENOUS USE?DOSAGE FORM: INFUSION
     Dates: start: 20231213, end: 20240103
  5. CARBOPLATIN [Suspect]
     Active Substance: CARBOPLATIN
     Dosage: 3.1 AUC, CYCLE 3?ROA: INTRAVENOUS USE?DOSAGE FORM: INFUSION
     Dates: start: 20240124, end: 20240124
  6. IFOSFAMIDE [Suspect]
     Active Substance: IFOSFAMIDE
     Indication: Diffuse large B-cell lymphoma stage II
     Dosage: CYCLE 1?ROA: INTRAVENOUS USE?DOSAGE FORM: INFUSION
     Dates: start: 20231213, end: 20231214
  7. IFOSFAMIDE [Suspect]
     Active Substance: IFOSFAMIDE
     Dosage: CYCLE 2?ROA: INTRAVENOUS USE?DOSAGE FORM: INFUSION
     Dates: start: 20240103, end: 20240104
  8. IFOSFAMIDE [Suspect]
     Active Substance: IFOSFAMIDE
     Dosage: CYCLE 3?ROA: INTRAVENOUS USE?DOSAGE FORM: INFUSION
     Dates: start: 20240124, end: 20240125
  9. EPCORITAMAB [Suspect]
     Active Substance: EPCORITAMAB
     Indication: Diffuse large B-cell lymphoma stage II
     Dosage: C1 D1?ROA: SUBCUTANEOUS USE?DOSAGE FORM: CONCENTRATE FOR SOLUTION FOR INJECTION
     Dates: start: 20231214, end: 20231214
  10. EPCORITAMAB [Suspect]
     Active Substance: EPCORITAMAB
     Dosage: C1D8?ROA: SUBCUTANEOUS USE?DOSAGE FORM: CONCENTRATE FOR SOLUTION FOR INJECTION
     Dates: start: 20231221, end: 20231221
  11. EPCORITAMAB [Suspect]
     Active Substance: EPCORITAMAB
     Dosage: C1D15 ONWARDS?ROA: SUBCUTANEOUS USE?DOSAGE FORM: CONCENTRATE FOR SOLUTION FOR INJECTION
     Dates: start: 20231228
  12. RITUXIMAB [Suspect]
     Active Substance: RITUXIMAB
     Indication: Diffuse large B-cell lymphoma stage II
     Dosage: CYCLE 1 - CYCLE 3?ROA: INTRAVENOUS USE
     Dates: start: 20231212, end: 20240123
  13. PREDNISOLONE [Concomitant]
     Active Substance: PREDNISOLONE
     Indication: Product used for unknown indication
     Dosage: UNK?ROA: UNKNOWN
     Dates: start: 20231221
  14. DEXAMETHASONE [Concomitant]
     Active Substance: DEXAMETHASONE
     Indication: Product used for unknown indication
     Dosage: UNK?ROA: UNKNOWN
     Dates: start: 20231212, end: 20240103
  15. PANTOPRAZOLE SODIUM [Concomitant]
     Active Substance: PANTOPRAZOLE SODIUM
     Indication: Product used for unknown indication
     Dosage: UNK?ROA: UNKNOWN
     Dates: start: 20230925
  16. PANADOL [Concomitant]
     Active Substance: ACETAMINOPHEN
     Indication: Product used for unknown indication
     Dosage: UNK?ROA: UNKNOWN
     Dates: start: 20240126
  17. PANADOL [Concomitant]
     Active Substance: ACETAMINOPHEN
     Dosage: UNK
     Route: 065
     Dates: start: 20240104, end: 20240104
  18. PEGFILGRASTIM [Concomitant]
     Active Substance: PEGFILGRASTIM
     Indication: Product used for unknown indication
     Dosage: UNK?ROA: UNKNOWN
     Dates: start: 20230929
  19. Beclomet [Concomitant]
     Indication: Product used for unknown indication
     Dosage: UNK?ROA: UNKNOWN
     Dates: start: 20201209
  20. ONDANSETRON [Concomitant]
     Active Substance: ONDANSETRON
     Indication: Product used for unknown indication
     Dosage: UNK?ROA: UNKNOWN
     Dates: start: 20230925
  21. FUROSEMIDE [Concomitant]
     Active Substance: FUROSEMIDE
     Indication: Product used for unknown indication
     Dosage: UNK?ROA: UNKNOWN
     Dates: start: 20230925
  22. SODIUM CHLORIDE [Concomitant]
     Active Substance: SODIUM CHLORIDE
     Indication: Product used for unknown indication
     Dosage: UNK?ROA: UNKNOWN
     Dates: start: 20240102, end: 20240104
  23. OXAZEPAM [Concomitant]
     Active Substance: OXAZEPAM
     Indication: Product used for unknown indication
     Dosage: UNK?ROA: UNKNOWN
     Dates: start: 20231204
  24. MYCOSTATIN [Concomitant]
     Active Substance: NYSTATIN
     Indication: Product used for unknown indication
     Dosage: UNK?ROA: UNKNOWN
     Dates: start: 20231222, end: 20240222
  25. FUROSEMIDE [Concomitant]
     Active Substance: FUROSEMIDE
     Indication: Product used for unknown indication
     Dosage: UNK?ROA: UNKNOWN
     Dates: start: 20231212
  26. LEVOTHYROXINE [Concomitant]
     Active Substance: LEVOTHYROXINE\LEVOTHYROXINE SODIUM
     Indication: Product used for unknown indication
     Dosage: UNK?ROA: UNKNOWN
     Dates: start: 20230921
  27. PRIMPERAN [Concomitant]
     Active Substance: METOCLOPRAMIDE HYDROCHLORIDE
     Indication: Product used for unknown indication
     Dosage: UNK?ROA: UNKNOWN
     Dates: start: 20230925
  28. ENOXAPARIN SODIUM [Concomitant]
     Active Substance: ENOXAPARIN SODIUM
     Indication: Product used for unknown indication
     Dosage: UNK?ROA: UNKNOWN
     Dates: start: 20230925, end: 20240320
  29. VALACYCLOVIR HYDROCHLORIDE [Concomitant]
     Active Substance: VALACYCLOVIR HYDROCHLORIDE
     Indication: Product used for unknown indication
     Dosage: UNK?ROA: UNKNOWN
     Dates: start: 20240118, end: 20240222
  30. IBUPROFEN [Concomitant]
     Active Substance: IBUPROFEN
     Indication: Product used for unknown indication
     Dosage: UNK?ROA: UNKNOWN
     Dates: start: 20230925, end: 20231230
  31. ACLOVIR [Concomitant]
     Indication: Product used for unknown indication
     Dosage: UNK?ROA: UNKNOWN
     Dates: start: 20240111, end: 20240117
  32. CEPHALEXIN [Concomitant]
     Active Substance: CEPHALEXIN
     Indication: Product used for unknown indication
     Dosage: UNK?ROA: UNKNOWN
     Dates: start: 20231231, end: 20240104
  33. MEROPENEM [Concomitant]
     Active Substance: MEROPENEM
     Indication: Product used for unknown indication
     Dosage: UNK?ROA: UNKNOWN
     Dates: start: 20240111, end: 20240128
  34. ELECTROLYTES NOS [Concomitant]
     Active Substance: ELECTROLYTES NOS
     Indication: Product used for unknown indication
     Dosage: ROA: UNKNOWN
     Dates: start: 20231228, end: 20231229
  35. POLYETHYLENE GLYCOL 4000 [Concomitant]
     Active Substance: POLYETHYLENE GLYCOL 4000
     Indication: Product used for unknown indication
     Dosage: UNK?ROA: UNKNOWN
     Dates: start: 20230929
  36. POTASSIUM CHLORIDE [Concomitant]
     Active Substance: POTASSIUM CHLORIDE
     Indication: Product used for unknown indication
     Dosage: UNK?ROA: UNKNOWN
     Dates: start: 20231006, end: 20240215
  37. CEFUROXIME [Concomitant]
     Active Substance: CEFUROXIME
     Indication: Product used for unknown indication
     Dosage: UNK?ROA: UNKNOWN
     Dates: start: 20231228, end: 20231231
  38. HICET [Concomitant]
     Indication: Product used for unknown indication
     Dosage: UNK?ROA: UNKNOWN
     Dates: start: 20240104, end: 20240104
  39. HYDROCORTISONE [Concomitant]
     Active Substance: HYDROCORTISONE\HYDROCORTISONE ACETATE
     Indication: Product used for unknown indication
     Dosage: UNK?ROA: UNKNOWN
     Dates: start: 20231218, end: 20240307
  40. ALOXI [Concomitant]
     Active Substance: PALONOSETRON HYDROCHLORIDE
     Indication: Product used for unknown indication
     Dosage: ROA: UNKNOWN
     Dates: start: 20240125, end: 20240125
  41. ARANESP [Concomitant]
     Active Substance: DARBEPOETIN ALFA
     Indication: Product used for unknown indication
     Dosage: UNK?ROA: UNKNOWN
     Dates: start: 20231222, end: 20240222
  42. DIFLUCAN [Concomitant]
     Active Substance: FLUCONAZOLE
     Indication: Product used for unknown indication
     Dosage: UNK?ROA: UNKNOWN
     Dates: start: 20231222, end: 20231229

REACTIONS (7)
  - Neutropenic infection [Recovered/Resolved]
  - Neutropenia [Unknown]
  - Cytokine release syndrome [Recovered/Resolved]
  - Feeling cold [Unknown]
  - Blister infected [Unknown]
  - Nasal herpes [Unknown]
  - Oral herpes [Unknown]

NARRATIVE: CASE EVENT DATE: 20240111
